FAERS Safety Report 7554197-5 (Version None)
Quarter: 2011Q2

REPORT INFORMATION
  Report Type: 
  Country: None (occurrence: None)
  Receive Date: 20110617
  Receipt Date: 20110614
  Transmission Date: 20111010
  Serious: No
  Sender: FDA-Public Use
  Company Number: US-PFIZER INC-2011130128

PATIENT
  Sex: Male
  Weight: 65.76 kg

DRUGS (6)
  1. CALCIUM [Concomitant]
     Dosage: 500 MG, UNK
  2. TAMSULOSIN HYDROCHLORIDE [Concomitant]
     Dosage: 0.4 MG, UNK
  3. CENTRUM SILVER [Concomitant]
     Dosage: UNK
  4. VITAMIN D [Concomitant]
     Dosage: 400 IU, UNK
  5. SUTENT [Suspect]
     Dosage: 50 MG, 1 CAPSULE EVERY DAY FOR 4 WEEKS ON, THEN 2 WEEKS OFF
     Route: 048
  6. MICARDIS [Concomitant]
     Dosage: 20 MG, UNK

REACTIONS (2)
  - SKIN FISSURES [None]
  - BLISTER [None]
